FAERS Safety Report 24342323 (Version 2)
Quarter: 2024Q4

REPORT INFORMATION
  Report Type: Report from Study
  Country: US (occurrence: US)
  Receive Date: 20240920
  Receipt Date: 20241001
  Transmission Date: 20250114
  Serious: Yes (Other)
  Sender: ABBVIE
  Company Number: US-ABBVIE-5928880

PATIENT
  Sex: Female
  Weight: 64 kg

DRUGS (1)
  1. RINVOQ [Suspect]
     Active Substance: UPADACITINIB
     Indication: Colitis ulcerative
     Route: 048
     Dates: start: 20240720

REACTIONS (3)
  - Pyoderma gangrenosum [Unknown]
  - Abdominal discomfort [Unknown]
  - Ulcer [Unknown]

NARRATIVE: CASE EVENT DATE: 20240101
